FAERS Safety Report 25761176 (Version 3)
Quarter: 2025Q4

REPORT INFORMATION
  Report Type: Spontaneous
  Country: US (occurrence: US)
  Receive Date: 20250904
  Receipt Date: 20251123
  Transmission Date: 20260118
  Serious: Yes (Hospitalization, Other)
  Sender: SANOFI AVENTIS
  Company Number: US-SA-2025SA264229

PATIENT
  Sex: Male
  Weight: 83.9 kg

DRUGS (13)
  1. DUPIXENT [Suspect]
     Active Substance: DUPILUMAB
     Indication: Nasal polyps
     Dosage: 300 MG, QOW
     Route: 058
  2. PRAMIPEXOLE DIHYDROCHLORIDE [Concomitant]
     Active Substance: PRAMIPEXOLE DIHYDROCHLORIDE
  3. LAMOTRIGINE [Concomitant]
     Active Substance: LAMOTRIGINE
  4. METFORMIN HYDROCHLORIDE [Concomitant]
     Active Substance: METFORMIN HYDROCHLORIDE
  5. CLONIDINE HYDROCHLORIDE [Concomitant]
     Active Substance: CLONIDINE HYDROCHLORIDE
  6. ARMODAFINIL [Concomitant]
     Active Substance: ARMODAFINIL
  7. DESCOVY [Concomitant]
     Active Substance: EMTRICITABINE\TENOFOVIR ALAFENAMIDE FUMARATE
  8. BUPROPION [Concomitant]
     Active Substance: BUPROPION
  9. TYLENOL [Concomitant]
     Active Substance: ACETAMINOPHEN
  10. MOUNJARO [Concomitant]
     Active Substance: TIRZEPATIDE
  11. XHANCE [Concomitant]
     Active Substance: FLUTICASONE PROPIONATE
  12. DOXYCYCLINE HYCLATE [Concomitant]
     Active Substance: DOXYCYCLINE HYCLATE
  13. TADALAFIL [Concomitant]
     Active Substance: TADALAFIL

REACTIONS (5)
  - Sepsis [Unknown]
  - Gastrointestinal disorder [Unknown]
  - Abdominal discomfort [Unknown]
  - Injection site discomfort [Unknown]
  - Wrong technique in device usage process [Unknown]
